FAERS Safety Report 12619125 (Version 2)
Quarter: 2016Q4

REPORT INFORMATION
  Report Type: Spontaneous
  Country: FR (occurrence: FR)
  Receive Date: 20160803
  Receipt Date: 20161201
  Transmission Date: 20170207
  Serious: Yes (Other)
  Sender: FDA-Public Use
  Company Number: FR-ABBVIE-16K-056-1690268-00

PATIENT
  Age: 23 Year
  Sex: Female

DRUGS (2)
  1. IMETH [Suspect]
     Active Substance: METHOTREXATE SODIUM
     Indication: ANKYLOSING SPONDYLITIS
     Route: 065
     Dates: start: 201501, end: 201504
  2. HUMIRA [Suspect]
     Active Substance: ADALIMUMAB
     Indication: CROHN^S DISEASE
     Dosage: 1 DOSAGE FORM
     Route: 058
     Dates: start: 201309

REACTIONS (10)
  - Nasal crusting [Recovered/Resolved]
  - Angular cheilitis [Recovered/Resolved]
  - Folliculitis [Not Recovered/Not Resolved]
  - Rhinitis [Recovered/Resolved]
  - Staphylococcal infection [Not Recovered/Not Resolved]
  - Furuncle [Not Recovered/Not Resolved]
  - Dermatitis psoriasiform [Unknown]
  - Psoriasis [Unknown]
  - Pustular psoriasis [Not Recovered/Not Resolved]
  - Staphylococcal abscess [Recovered/Resolved]

NARRATIVE: CASE EVENT DATE: 201502
